FAERS Safety Report 23733864 (Version 1)
Quarter: 2024Q2

REPORT INFORMATION
  Report Type: Spontaneous
  Country: FR (occurrence: FR)
  Receive Date: 20240412
  Receipt Date: 20240412
  Transmission Date: 20240716
  Serious: Yes (Death, Hospitalization)
  Sender: FDA-Public Use
  Company Number: None

PATIENT
  Age: 28 Year
  Sex: Female

DRUGS (7)
  1. CYCLOSPORINE [Suspect]
     Active Substance: CYCLOSPORINE
     Indication: Acquired epidermolysis bullosa
     Dosage: 5 MG/KG/D/CYCLOSPORINE WAS LATER STOPPED AFTER ONE YEAR
     Route: 065
  2. METHACHOLINE [Suspect]
     Active Substance: METHACHOLINE
     Indication: Acquired epidermolysis bullosa
     Dosage: UNK
     Route: 065
  3. METHYLPREDNISOLONE [Suspect]
     Active Substance: METHYLPREDNISOLONE
     Indication: Acquired epidermolysis bullosa
     Dosage: TWO BOLUSES
     Route: 065
  4. PREDNISONE [Suspect]
     Active Substance: PREDNISONE
     Indication: Acquired epidermolysis bullosa
     Dosage: 1 MG/KG/D/COMBINATION WITH RITUXIMAB/RESUMPTION OF CORTICOSTEROIDS (PREDNISONE 1 MG/KG/DAY)
     Route: 065
  5. RITUXIMAB [Suspect]
     Active Substance: RITUXIMAB
     Indication: Acquired epidermolysis bullosa
     Dosage: 1 G (2 INFUSIONS 15 DAYS APART)
     Route: 042
  6. RITUXIMAB [Suspect]
     Active Substance: RITUXIMAB
     Dosage: 1 G (2 INFUSIONS 15 DAYS APART)
     Route: 042
  7. SULFASALAZINE [Concomitant]
     Active Substance: SULFASALAZINE
     Indication: Product used for unknown indication
     Dosage: HAD TO STOP AFTER 4 WEEKS BECAUSE OF DRUG REACTION WITH EOSINOPHILIA AND SYSTEMIC SYMPTOMS (DRESS)
     Route: 065

REACTIONS (3)
  - Pneumocystis jirovecii pneumonia [Fatal]
  - Acute respiratory failure [Fatal]
  - Therapy partial responder [Unknown]
